FAERS Safety Report 5564569-6 (Version None)
Quarter: 2007Q4

REPORT INFORMATION
  Report Type: 
  Country: None (occurrence: None)
  Receive Date: 20071212
  Receipt Date: 20071206
  Transmission Date: 20080405
  Serious: Yes (Death)
  Sender: FDA-Public Use
  Company Number: 2007SP024095

PATIENT
  Age: 75 Year
  Sex: Female
  Weight: 36 kg

DRUGS (10)
  1. PEG-INTRON [Suspect]
     Indication: HEPATITIS C
     Dosage: 50 MCG;QW; SC;  100 MCG;QW; SC
     Route: 058
     Dates: start: 20070418, end: 20070605
  2. PEG-INTRON [Suspect]
     Indication: HEPATITIS C
     Dosage: 50 MCG;QW; SC;  100 MCG;QW; SC
     Route: 058
     Dates: start: 20070606, end: 20070904
  3. REBETOL [Suspect]
     Indication: HEPATITIS C
     Dosage: 400 MG; QD; PO
     Route: 048
     Dates: start: 20070402, end: 20070911
  4. EPADEL [Concomitant]
  5. URSO 250 [Concomitant]
  6. GLYCYRON [Concomitant]
  7. ALDACTONE [Concomitant]
  8. GLYBURIDE [Concomitant]
  9. SEIBULE [Concomitant]
  10. MEILAX [Concomitant]

REACTIONS (2)
  - CEREBRAL HAEMORRHAGE [None]
  - FALL [None]
